FAERS Safety Report 6523491-9 (Version None)
Quarter: 2009Q4

REPORT INFORMATION
  Report Type: 
  Country: None (occurrence: None)
  Receive Date: 20091231
  Receipt Date: 20091221
  Transmission Date: 20100525
  Serious: Yes (Other)
  Sender: FDA-Public Use
  Company Number: PHHY2009NL57068

PATIENT
  Sex: Female

DRUGS (1)
  1. DIOVAN [Suspect]
     Dosage: 40 MG/DAYUNK
     Route: 048
     Dates: start: 20090930

REACTIONS (2)
  - BLADDER CATHETERISATION [None]
  - CYSTITIS [None]
